FAERS Safety Report 7399517-X (Version None)
Quarter: 2011Q2

REPORT INFORMATION
  Report Type: 
  Country: None (occurrence: None)
  Receive Date: 20110407
  Receipt Date: 20110328
  Transmission Date: 20111010
  Serious: Yes (Other)
  Sender: FDA-Public Use
  Company Number: US-ELI_LILLY_AND_COMPANY-US200911006346

PATIENT
  Age: 70 Year
  Sex: Female

DRUGS (3)
  1. FORTEO [Suspect]
     Dosage: UNK, UNKNOWN
     Route: 065
  2. FORTEO [Suspect]
     Dosage: UNK, UNK
     Dates: start: 20090801
  3. FORTEO [Suspect]
     Dosage: UNK, UNKNOWN
     Route: 065

REACTIONS (3)
  - MUSCLE SPASMS [None]
  - INJECTION SITE PAIN [None]
  - SPINAL FUSION SURGERY [None]
